FAERS Safety Report 15771413 (Version 2)
Quarter: 2019Q1

REPORT INFORMATION
  Report Type: Spontaneous
  Country: US (occurrence: US)
  Receive Date: 20181228
  Receipt Date: 20190328
  Transmission Date: 20190417
  Serious: No
  Sender: FDA-Public Use
  Company Number: US-INDIVIOR LIMITED-INDV-115404-2018

PATIENT
  Age: 27 Year
  Sex: Male

DRUGS (1)
  1. SUBLOCADE [Suspect]
     Active Substance: BUPRENORPHINE
     Indication: DRUG DEPENDENCE
     Dosage: 300MG, QMO
     Route: 058
     Dates: start: 20181017

REACTIONS (4)
  - Skin burning sensation [Recovered/Resolved]
  - Injection site extravasation [Recovered/Resolved]
  - Pain [Unknown]
  - Dermatitis [Recovered/Resolved]

NARRATIVE: CASE EVENT DATE: 2018
